FAERS Safety Report 5797685-4 (Version None)
Quarter: 2008Q3

REPORT INFORMATION
  Report Type: 
  Country: None (occurrence: None)
  Receive Date: 20080702
  Receipt Date: 20080626
  Transmission Date: 20090109
  Serious: No
  Sender: FDA-Public Use
  Company Number: US-PFIZER INC-2007028988

PATIENT
  Sex: Female
  Weight: 39.5 kg

DRUGS (4)
  1. NEURONTIN [Suspect]
     Indication: NEUROPATHY PERIPHERAL
  2. LYRICA [Suspect]
     Indication: NEUROPATHY PERIPHERAL
  3. VITAMINS [Concomitant]
  4. IBUROFEN [Concomitant]

REACTIONS (1)
  - NO ADVERSE EVENT [None]
